FAERS Safety Report 17423514 (Version 5)
Quarter: 2021Q1

REPORT INFORMATION
  Report Type: Report from Study
  Country: JP (occurrence: JP)
  Receive Date: 20200217
  Receipt Date: 20210111
  Transmission Date: 20210419
  Serious: Yes (Hospitalization)
  Sender: FDA-Public Use
  Company Number: JP-TAKEDA-2019TJP001184

PATIENT
  Age: 75 Year
  Sex: Male
  Weight: 58.2 kg

DRUGS (8)
  1. REVLIMID [Suspect]
     Active Substance: LENALIDOMIDE
     Indication: PLASMA CELL MYELOMA
     Dosage: 20 MILLIGRAM, QD
     Route: 048
     Dates: start: 20181204
  2. LENADEX [Suspect]
     Active Substance: DEXAMETHASONE ACETATE
     Indication: PLASMA CELL MYELOMA
     Dosage: 20 MILLIGRAM, 1/WEEK
     Route: 048
     Dates: start: 20181204
  3. IXAZOMIB [Suspect]
     Active Substance: IXAZOMIB
     Indication: PLASMA CELL MYELOMA
     Dosage: 4 MILLIGRAM, 1/WEEK
     Route: 048
     Dates: start: 20181204
  4. DIQUAS [Concomitant]
     Active Substance: DIQUAFOSOL TETRASODIUM
     Indication: DRY EYE
     Dosage: UNK, QD
     Route: 047
     Dates: start: 20160105
  5. HYALONSAN [Concomitant]
     Active Substance: HYALURONATE SODIUM
     Indication: DRY EYE
     Dosage: UNK
     Route: 047
     Dates: start: 20160105
  6. ALFAROL [Concomitant]
     Active Substance: ALFACALCIDOL
     Indication: OSTEOPOROSIS
     Dosage: 0.25 MICROGRAM, QD
     Route: 048
     Dates: start: 20150721
  7. MUCOSTA [Concomitant]
     Active Substance: REBAMIPIDE
     Indication: DRY EYE
     Dosage: UNK, QID
     Route: 047
     Dates: start: 20160105
  8. CALONAL [Concomitant]
     Active Substance: ACETAMINOPHEN
     Indication: PAIN
     Dosage: 500 MILLIGRAM
     Route: 048
     Dates: start: 20190129

REACTIONS (12)
  - Constipation [Not Recovered/Not Resolved]
  - Palmar-plantar erythrodysaesthesia syndrome [Recovered/Resolved]
  - Dry skin [Unknown]
  - Nausea [Recovered/Resolved]
  - Pneumonia [Recovered/Resolved]
  - Periodontitis [Recovered/Resolved]
  - Hepatic function abnormal [Recovered/Resolved]
  - Gastrooesophageal reflux disease [Recovering/Resolving]
  - Vomiting [Recovered/Resolved]
  - Neutropenia [Recovered/Resolved]
  - Nail ridging [Not Recovered/Not Resolved]
  - Nasopharyngitis [Recovered/Resolved]

NARRATIVE: CASE EVENT DATE: 20181204
